FAERS Safety Report 8098765-3 (Version None)
Quarter: 2012Q1

REPORT INFORMATION
  Report Type: 
  Country: None (occurrence: None)
  Receive Date: 20120131
  Receipt Date: 20120127
  Transmission Date: 20120608
  Serious: Yes (Hospitalization, Other)
  Sender: FDA-Public Use
  Company Number: US-SHIONOGI, INC-2012000082

PATIENT
  Age: 58 Year
  Sex: Male

DRUGS (1)
  1. CEPHALEXIN [Suspect]
     Dosage: UNK

REACTIONS (1)
  - ACUTE GENERALISED EXANTHEMATOUS PUSTULOSIS [None]
